FAERS Safety Report 7655175-8 (Version None)
Quarter: 2011Q3

REPORT INFORMATION
  Report Type: 
  Country: None (occurrence: None)
  Receive Date: 20110804
  Receipt Date: 20110801
  Transmission Date: 20111222
  Serious: No
  Sender: FDA-Public Use
  Company Number: US-PFIZER INC-2011175567

PATIENT
  Sex: Female

DRUGS (1)
  1. PREMARIN [Suspect]
     Indication: MENOPAUSE
     Dosage: 1.25 MG, 1X/DAY
     Route: 048
     Dates: start: 20080101

REACTIONS (4)
  - ASTHENIA [None]
  - EMOTIONAL DISORDER [None]
  - NIGHT SWEATS [None]
  - HORMONE LEVEL ABNORMAL [None]
